FAERS Safety Report 7392386-3 (Version None)
Quarter: 2011Q2

REPORT INFORMATION
  Report Type: 
  Country: None (occurrence: None)
  Receive Date: 20110404
  Receipt Date: 20110322
  Transmission Date: 20111010
  Serious: Yes (Other)
  Sender: FDA-Public Use
  Company Number: US-ELI_LILLY_AND_COMPANY-US201103007326

PATIENT
  Sex: Female

DRUGS (12)
  1. FAMOTIDINE [Concomitant]
     Dosage: 1 UNK, UNK
  2. HIDROXIZIN [Concomitant]
     Dosage: 1 DF, UNK
  3. PRAVASTATIN [Concomitant]
     Dosage: 1 UNK, UNK
  4. ATENOLOL [Concomitant]
     Dosage: 1 UNK, UNK
  5. EVISTA [Suspect]
     Indication: OSTEOPOROSIS
     Dosage: 60 MG, QD
     Dates: start: 20010101
  6. ASPIRIN [Concomitant]
     Dosage: 1 UNK, UNK
  7. HYDROCHLOROTHIAZIDE [Concomitant]
     Dosage: 1 UNK, UNK
  8. SIVASTIN [Concomitant]
     Dosage: 1 UNK, UNK
  9. MULTI-VITAMIN [Concomitant]
     Dosage: 1 DF, UNK
  10. PAROXETINE HCL [Concomitant]
     Dosage: 1 UNK, UNK
  11. TAMOXIFEN CITRATE [Concomitant]
     Dosage: 1 UNK, UNK
  12. LISINOPRIL [Concomitant]
     Dosage: 1 UNK, UNK

REACTIONS (2)
  - BREAST CANCER [None]
  - CORONARY ARTERIAL STENT INSERTION [None]
